FAERS Safety Report 5702268-8 (Version None)
Quarter: 2008Q2

REPORT INFORMATION
  Report Type: 
  Country: None (occurrence: None)
  Receive Date: 20080411
  Receipt Date: 20071101
  Transmission Date: 20081010
  Serious: Yes (Congenital Anomaly)
  Sender: FDA-Public Use
  Company Number: US-ABBOTT-07P-163-0423143-00

PATIENT
  Age: 1 Day
  Sex: Male

DRUGS (1)
  1. DEPAKOTE [Suspect]
     Indication: DRUG EXPOSURE DURING PREGNANCY
     Route: 064

REACTIONS (2)
  - CONGENITAL AORTIC VALVE STENOSIS [None]
  - CONGENITAL HYDROCEPHALUS [None]
